FAERS Safety Report 5098761-4 (Version None)
Quarter: 2006Q3

REPORT INFORMATION
  Report Type: 
  Country: None (occurrence: None)
  Receive Date: 20060907
  Receipt Date: 20060830
  Transmission Date: 20061208
  Serious: Yes (Hospitalization)
  Sender: FDA-Public Use
  Company Number: JP-JPN-A200603417

PATIENT
  Age: 46 Year
  Sex: Male

DRUGS (7)
  1. EPIVIR [Suspect]
     Indication: ACQUIRED IMMUNODEFICIENCY SYNDROME
     Dosage: 300MG PER DAY
     Route: 048
     Dates: start: 20060530, end: 20060625
  2. STOCRIN [Suspect]
     Indication: ACQUIRED IMMUNODEFICIENCY SYNDROME
     Dosage: 600MG PER DAY
     Route: 048
     Dates: start: 20060530, end: 20060619
  3. VIREAD [Suspect]
     Indication: ACQUIRED IMMUNODEFICIENCY SYNDROME
     Dosage: 300MG PER DAY
     Route: 048
     Dates: start: 20060530, end: 20060625
  4. BACTRIM [Concomitant]
     Route: 048
     Dates: start: 20060327
  5. DIFLUCAN [Concomitant]
     Indication: OESOPHAGEAL CANDIDIASIS
     Dosage: 100MG PER DAY
     Route: 048
     Dates: start: 20060413
  6. SELBEX [Concomitant]
     Dosage: 1UNIT THREE TIMES PER DAY
     Route: 048
     Dates: start: 20060327
  7. STROCAIN [Concomitant]
     Dosage: 1UNIT THREE TIMES PER DAY
     Route: 048
     Dates: start: 20060327

REACTIONS (7)
  - HEPATOSPLENOMEGALY [None]
  - LIVER DISORDER [None]
  - LYMPHADENITIS [None]
  - LYMPHADENOPATHY [None]
  - LYMPHOMA [None]
  - MELAENA [None]
  - PYREXIA [None]
